FAERS Safety Report 16315118 (Version 3)
Quarter: 2021Q3

REPORT INFORMATION
  Report Type: Spontaneous
  Country: US (occurrence: US)
  Receive Date: 20190515
  Receipt Date: 20210721
  Transmission Date: 20211014
  Serious: Yes (Other)
  Sender: FDA-Public Use
  Company Number: US-ASTRAZENECA-2019SE66936

PATIENT
  Age: 21683 Day
  Sex: Male
  Weight: 99.8 kg

DRUGS (73)
  1. DEXILANT [Suspect]
     Active Substance: DEXLANSOPRAZOLE
     Indication: GASTROOESOPHAGEAL REFLUX DISEASE
     Dosage: 60.0MG UNKNOWN
     Route: 048
     Dates: start: 20131212
  2. LIVALO [Concomitant]
     Active Substance: PITAVASTATIN CALCIUM
     Indication: BLOOD CHOLESTEROL INCREASED
     Dates: start: 201102, end: 201302
  3. ZANTAC [Concomitant]
     Active Substance: RANITIDINE HYDROCHLORIDE
     Dates: start: 1998, end: 2009
  4. EFFIENT [Concomitant]
     Active Substance: PRASUGREL HYDROCHLORIDE
     Dates: start: 20100609
  5. FENTANYL. [Concomitant]
     Active Substance: FENTANYL
  6. CODEINE [Concomitant]
     Active Substance: CODEINE
     Indication: COUGH
  7. SIMETHICONE (DIMETHICONE) [Concomitant]
     Active Substance: DIMETHICONE
  8. HYDROCHLOROTHIAZIDE. [Concomitant]
     Active Substance: HYDROCHLOROTHIAZIDE
  9. ROSUVASTATIN. [Concomitant]
     Active Substance: ROSUVASTATIN
  10. SIMVASTATIN. [Concomitant]
     Active Substance: SIMVASTATIN
  11. PULMICORT TURBUHALER [Concomitant]
     Active Substance: BUDESONIDE
  12. TERBINAFINE HYDROCHLORIDE. [Concomitant]
     Active Substance: TERBINAFINE HYDROCHLORIDE
  13. NEXIUM [Suspect]
     Active Substance: ESOMEPRAZOLE MAGNESIUM
     Indication: GASTROOESOPHAGEAL REFLUX DISEASE
     Route: 048
     Dates: start: 200909, end: 201403
  14. OMEPRAZOLE. [Suspect]
     Active Substance: OMEPRAZOLE
     Indication: GASTROOESOPHAGEAL REFLUX DISEASE
     Dosage: GENERIC
     Route: 048
     Dates: start: 20061005
  15. OMEPRAZOLE. [Suspect]
     Active Substance: OMEPRAZOLE
     Indication: GASTROOESOPHAGEAL REFLUX DISEASE
     Dosage: GENERIC
     Route: 048
     Dates: start: 20041101
  16. FAMOTIDINE. [Concomitant]
     Active Substance: FAMOTIDINE
     Dates: start: 201101, end: 201302
  17. TYLENOL [Concomitant]
     Active Substance: ACETAMINOPHEN
  18. VARDENAFIL [Concomitant]
     Active Substance: VARDENAFIL HYDROCHLORIDE
  19. ABCIXIMAB [Concomitant]
     Active Substance: ABCIXIMAB
  20. NEXIUM [Suspect]
     Active Substance: ESOMEPRAZOLE MAGNESIUM
     Indication: GASTROOESOPHAGEAL REFLUX DISEASE
     Route: 048
  21. OMEPRAZOLE. [Suspect]
     Active Substance: OMEPRAZOLE
     Indication: GASTROOESOPHAGEAL REFLUX DISEASE
     Dosage: GENERIC
     Route: 065
  22. ACETAMINOPHEN. [Concomitant]
     Active Substance: ACETAMINOPHEN
     Indication: PAIN
     Dates: start: 201308
  23. GLIMEPIRIDE. [Concomitant]
     Active Substance: GLIMEPIRIDE
     Dates: start: 20110804
  24. DIAZEPAM. [Concomitant]
     Active Substance: DIAZEPAM
     Dates: start: 20130831
  25. BYDUREON [Concomitant]
     Active Substance: EXENATIDE
  26. LORATADINE. [Concomitant]
     Active Substance: LORATADINE
  27. CETRIZINE [Concomitant]
     Active Substance: CETIRIZINE HYDROCHLORIDE
  28. PREDNISONE. [Concomitant]
     Active Substance: PREDNISONE
  29. NEXIUM [Suspect]
     Active Substance: ESOMEPRAZOLE MAGNESIUM
     Indication: GASTROOESOPHAGEAL REFLUX DISEASE
     Dosage: 40.0MG UNKNOWN
     Route: 048
     Dates: start: 20090930
  30. NEXIUM [Suspect]
     Active Substance: ESOMEPRAZOLE MAGNESIUM
     Indication: GASTROOESOPHAGEAL REFLUX DISEASE
     Dosage: 40.0MG UNKNOWN
     Route: 048
     Dates: start: 20101109
  31. ACETAMINOPHEN. [Concomitant]
     Active Substance: ACETAMINOPHEN
     Indication: PAIN
     Dates: start: 201301
  32. PREDNISONE. [Concomitant]
     Active Substance: PREDNISONE
     Dates: start: 20150420
  33. ALBUTEROL. [Concomitant]
     Active Substance: ALBUTEROL
  34. ROSIGLITAZONE [Concomitant]
     Active Substance: ROSIGLITAZONE
  35. CLOPIDOGREL [Concomitant]
     Active Substance: CLOPIDOGREL BISULFATE
  36. SIMETHICONE (DIMETHICONE) [Concomitant]
     Active Substance: DIMETHICONE
  37. PIOHLITAZONE [Concomitant]
  38. OMEPRAZOLE. [Suspect]
     Active Substance: OMEPRAZOLE
     Indication: GASTROOESOPHAGEAL REFLUX DISEASE
     Dosage: GENERIC
     Route: 065
     Dates: start: 20131212
  39. PREVPAC [Concomitant]
     Active Substance: AMOXICILLIN\CLARITHROMYCIN\LANSOPRAZOLE
     Dates: start: 20091009
  40. LEVITRA [Concomitant]
     Active Substance: VARDENAFIL HYDROCHLORIDE
     Dates: start: 20100821
  41. OXYCODONE [Concomitant]
     Active Substance: OXYCODONE
     Dates: start: 20141206
  42. LISINOPRIL. [Concomitant]
     Active Substance: LISINOPRIL
  43. ANGIOMAX [Concomitant]
     Active Substance: BIVALIRUDIN
  44. FLUNISOLIDE. [Concomitant]
     Active Substance: FLUNISOLIDE
  45. DOCUSATE SODIUM. [Concomitant]
     Active Substance: DOCUSATE SODIUM
  46. GLYBURIDE. [Concomitant]
     Active Substance: GLYBURIDE
  47. NEXIUM [Suspect]
     Active Substance: ESOMEPRAZOLE MAGNESIUM
     Indication: GASTROOESOPHAGEAL REFLUX DISEASE
     Dosage: 40.0MG UNKNOWN
     Route: 048
     Dates: start: 20170119
  48. VIAGRA [Concomitant]
     Active Substance: SILDENAFIL CITRATE
     Dates: start: 20090804
  49. CYCLOBENZAPRINE. [Concomitant]
     Active Substance: CYCLOBENZAPRINE
  50. TRULICITY [Concomitant]
     Active Substance: DULAGLUTIDE
     Dates: start: 20150731
  51. FLUTICASONE. [Concomitant]
     Active Substance: FLUTICASONE
  52. ZEGERID [Concomitant]
     Active Substance: OMEPRAZOLE\SODIUM BICARBONATE
  53. MUCINEX [Concomitant]
     Active Substance: GUAIFENESIN
  54. NASONEX [Concomitant]
     Active Substance: MOMETASONE FUROATE
  55. SIMVASTATIN. [Concomitant]
     Active Substance: SIMVASTATIN
  56. ALUMINIUM [Concomitant]
     Active Substance: ALUMINUM
  57. VARDENAFIL HYDROCHLORIDE. [Concomitant]
     Active Substance: VARDENAFIL HYDROCHLORIDE
  58. PSYLLIUM [Concomitant]
     Active Substance: PLANTAGO SEED
  59. NEXIUM 24HR [Suspect]
     Active Substance: ESOMEPRAZOLE MAGNESIUM
     Indication: GASTROOESOPHAGEAL REFLUX DISEASE
     Route: 048
     Dates: start: 2014
  60. OMEPRAZOLE. [Suspect]
     Active Substance: OMEPRAZOLE
     Indication: GASTROOESOPHAGEAL REFLUX DISEASE
     Dosage: GENERIC
     Route: 065
     Dates: start: 20140206
  61. OMEPRAZOLE. [Suspect]
     Active Substance: OMEPRAZOLE
     Indication: GASTROOESOPHAGEAL REFLUX DISEASE
     Dosage: GENERIC
     Route: 048
     Dates: start: 20050815, end: 20060817
  62. DEXILANT [Suspect]
     Active Substance: DEXLANSOPRAZOLE
     Indication: GASTROOESOPHAGEAL REFLUX DISEASE
     Dosage: 60.0MG UNKNOWN
     Route: 048
     Dates: start: 20120808
  63. FAMOTIDINE. [Concomitant]
     Active Substance: FAMOTIDINE
     Dates: start: 20110705
  64. JANUMET [Concomitant]
     Active Substance: METFORMIN HYDROCHLORIDE\SITAGLIPTIN PHOSPHATE
     Dates: start: 20120219
  65. HYDROCODONE [Concomitant]
     Active Substance: HYDROCODONE
  66. ASPIRIN. [Concomitant]
     Active Substance: ASPIRIN
  67. METFORMIN [Concomitant]
     Active Substance: METFORMIN HYDROCHLORIDE
  68. OMEPRAZOLE. [Suspect]
     Active Substance: OMEPRAZOLE
     Indication: GASTROOESOPHAGEAL REFLUX DISEASE
     Dosage: GENERIC
     Route: 048
     Dates: start: 20040322, end: 20050323
  69. DEXILANT [Suspect]
     Active Substance: DEXLANSOPRAZOLE
     Indication: GASTROOESOPHAGEAL REFLUX DISEASE
     Route: 065
     Dates: start: 201306
  70. CIALIS [Concomitant]
     Active Substance: TADALAFIL
     Dates: start: 20120901
  71. ONDANSETRON [Concomitant]
     Active Substance: ONDANSETRON
     Dates: start: 20141206
  72. FLEXERIL [Concomitant]
     Active Substance: CYCLOBENZAPRINE HYDROCHLORIDE
  73. HEPARIN [Concomitant]
     Active Substance: HEPARIN SODIUM

REACTIONS (5)
  - Chronic kidney disease [Not Recovered/Not Resolved]
  - Nephrogenic anaemia [Unknown]
  - Renal impairment [Unknown]
  - Renal failure [Unknown]
  - Gastrooesophageal reflux disease [Not Recovered/Not Resolved]

NARRATIVE: CASE EVENT DATE: 20130501
